FAERS Safety Report 8592708-1 (Version None)
Quarter: 2012Q3

REPORT INFORMATION
  Report Type: 
  Country: None (occurrence: None)
  Receive Date: 20120814
  Receipt Date: 20120702
  Transmission Date: 20120928
  Serious: No
  Sender: FDA-Public Use
  Company Number: US-COVIDIEN/TYCO HEALTHCARE/MALLINCKRODT-T201202724

PATIENT
  Sex: Male

DRUGS (1)
  1. FENTANYL [Suspect]
     Indication: BACK PAIN
     Dosage: 100 UG/HR, EVERY 72 HOURS
     Dates: start: 20090101

REACTIONS (5)
  - DRUG ADMINISTRATION ERROR [None]
  - PSYCHOMOTOR HYPERACTIVITY [None]
  - MALAISE [None]
  - WITHDRAWAL SYNDROME [None]
  - DRUG INEFFECTIVE [None]
